FAERS Safety Report 4512630-7 (Version None)
Quarter: 2004Q4

REPORT INFORMATION
  Report Type: 
  Country: None (occurrence: None)
  Receive Date: 20041008
  Receipt Date: 20040910
  Transmission Date: 20050328
  Serious: Yes (Other)
  Sender: FDA-Public Use
  Company Number: 2004S1000183

PATIENT
  Age: 77 Year
  Sex: Male
  Weight: 106 kg

DRUGS (4)
  1. CUBICIN [Suspect]
     Indication: WOUND INFECTION STAPHYLOCOCCAL
     Dosage: 420 MG; Q24H;IV
     Route: 042
     Dates: start: 20040716, end: 20040907
  2. HEPARIN [Suspect]
     Dosage: IV
     Route: 042
     Dates: start: 20040101
  3. VANCOMYCIN [Concomitant]
  4. AZTREONAM [Concomitant]

REACTIONS (1)
  - THROMBOCYTOPENIA [None]
